FAERS Safety Report 4968841-X (Version None)
Quarter: 2006Q2

REPORT INFORMATION
  Report Type: 
  Country: None (occurrence: None)
  Receive Date: 20060411
  Receipt Date: 20060404
  Transmission Date: 20061013
  Serious: Yes (Death)
  Sender: FDA-Public Use
  Company Number: PHBS2006GB05052

PATIENT
  Age: 53 Year
  Sex: Male

DRUGS (2)
  1. CYCLOSPORINE [Suspect]
     Indication: RENAL TRANSPLANT
     Dosage: 230 MG/D
     Route: 048
  2. PREDNISOLONE [Suspect]
     Indication: RENAL TRANSPLANT
     Dosage: 5 MG/D
     Route: 048

REACTIONS (9)
  - ALOPECIA [None]
  - BOWEN'S DISEASE [None]
  - EXCORIATION [None]
  - LYMPHADENOPATHY [None]
  - MYCOSIS FUNGOIDES [None]
  - NEOPLASM SKIN [None]
  - SKIN EXFOLIATION [None]
  - SKIN LESION [None]
  - SKIN NODULE [None]
